FAERS Safety Report 6814941-9 (Version None)
Quarter: 2010Q2

REPORT INFORMATION
  Report Type: 
  Country: None (occurrence: None)
  Receive Date: 20100628
  Receipt Date: 20100614
  Transmission Date: 20101027
  Serious: Yes (Hospitalization)
  Sender: FDA-Public Use
  Company Number: 2010AP001234

PATIENT
  Age: 68 Year
  Sex: Female

DRUGS (5)
  1. METFORMIN HCL [Suspect]
     Dosage: 500 MG; BID; PO
     Route: 048
     Dates: start: 20080124
  2. GLYBURIDE [Suspect]
     Dates: end: 20080401
  3. METFORMIN HYDROCHLORIDE [Concomitant]
  4. GLIMEPIRIDE [Concomitant]
  5. INSULIN GLARGINE [Concomitant]

REACTIONS (1)
  - MYOCARDIAL INFARCTION [None]
